FAERS Safety Report 9760352 (Version 1)
Quarter: 2013Q4

REPORT INFORMATION
  Report Type: Spontaneous
  Country: US (occurrence: US)
  Receive Date: 20131216
  Receipt Date: 20131216
  Transmission Date: 20140711
  Serious: No
  Sender: FDA-Public Use
  Company Number: US-GILEAD-2010-0029509

PATIENT
  Age: 85 Year
  Sex: Female

DRUGS (10)
  1. LETAIRIS [Suspect]
     Indication: PULMONARY ARTERIAL HYPERTENSION
     Route: 048
     Dates: start: 20100430
  2. LETAIRIS [Suspect]
     Route: 048
     Dates: start: 20100217, end: 20100317
  3. CENTRUM [Concomitant]
  4. LASIX [Concomitant]
  5. KLOR-CON [Concomitant]
  6. BYSTOLIC [Concomitant]
  7. ADVAIR [Concomitant]
  8. COUMADIN [Concomitant]
  9. PRILOSEC [Concomitant]
  10. BENTYL [Concomitant]

REACTIONS (1)
  - Pruritus [Not Recovered/Not Resolved]
